FAERS Safety Report 17856840 (Version 1)
Quarter: 2020Q2

REPORT INFORMATION
  Report Type: Spontaneous
  Country: CN (occurrence: CN)
  Receive Date: 20200603
  Receipt Date: 20200603
  Transmission Date: 20200714
  Serious: Yes (Other)
  Sender: FDA-Public Use
  Company Number: CN-PFIZER INC-2020216660

PATIENT
  Age: 57 Year
  Sex: Female
  Weight: 39.5 kg

DRUGS (2)
  1. MEROPENEM. [Suspect]
     Active Substance: MEROPENEM
     Indication: INFECTION
     Dosage: 0.5 G, 2X/DAY
     Route: 041
     Dates: start: 20200522, end: 20200527
  2. ZYVOX [Suspect]
     Active Substance: LINEZOLID
     Indication: INFECTION
     Dosage: 600 MG, 2X/DAY
     Route: 041
     Dates: start: 20200526, end: 20200527

REACTIONS (4)
  - Mental disorder [Recovered/Resolved]
  - Disorganised speech [Recovered/Resolved]
  - Chest discomfort [Recovered/Resolved]
  - Psychomotor hyperactivity [Recovered/Resolved]

NARRATIVE: CASE EVENT DATE: 20200527
